FAERS Safety Report 15440254 (Version 2)
Quarter: 2018Q4

REPORT INFORMATION
  Report Type: Spontaneous
  Country: DE (occurrence: DE)
  Receive Date: 20180928
  Receipt Date: 20181003
  Transmission Date: 20190204
  Serious: Yes (Hospitalization, Other)
  Sender: FDA-Public Use
  Company Number: DE-NOVOPROD-622962

PATIENT
  Age: 66 Year
  Sex: Male
  Weight: 76 kg

DRUGS (2)
  1. LEVEMIR [Suspect]
     Active Substance: INSULIN DETEMIR
     Indication: TYPE 2 DIABETES MELLITUS
     Dosage: 12 IE, QD
     Route: 058
     Dates: start: 20180806, end: 20180809
  2. LEVEMIR [Suspect]
     Active Substance: INSULIN DETEMIR
     Dosage: UNK,
     Route: 058

REACTIONS (7)
  - Pain [Recovered/Resolved]
  - Drug ineffective [Unknown]
  - Neck pain [Unknown]
  - Nausea [Recovered/Resolved]
  - Transient ischaemic attack [Unknown]
  - Diabetes mellitus inadequate control [Unknown]
  - Paresis [Recovered/Resolved]

NARRATIVE: CASE EVENT DATE: 201808
